FAERS Safety Report 16174859 (Version 1)
Quarter: 2019Q2

REPORT INFORMATION
  Report Type: Spontaneous
  Country: SK (occurrence: SK)
  Receive Date: 20190409
  Receipt Date: 20190409
  Transmission Date: 20190711
  Serious: Yes (Hospitalization)
  Sender: FDA-Public Use
  Company Number: PHHY2019SK076194

PATIENT
  Age: 69 Year
  Sex: Male
  Weight: 70 kg

DRUGS (7)
  1. VEROSPIRON [Concomitant]
     Active Substance: SPIRONOLACTONE
     Indication: PRODUCT USED FOR UNKNOWN INDICATION
     Dosage: 25 MG, UNK (1-0-1)
     Route: 065
  2. BETALOC ZOK [Concomitant]
     Active Substance: METOPROLOL SUCCINATE
     Indication: PRODUCT USED FOR UNKNOWN INDICATION
     Dosage: 50 MG, UNK (1-0-1)
     Route: 065
  3. EBRANTIL [Concomitant]
     Active Substance: URAPIDIL
     Indication: PRODUCT USED FOR UNKNOWN INDICATION
     Dosage: 60 MG, UNK (1-0-1)
  4. FURON [Concomitant]
     Active Substance: FUROSEMIDE
     Indication: PRODUCT USED FOR UNKNOWN INDICATION
     Dosage: 40 MG: 1-1-0
     Route: 065
  5. DIGOXIN. [Concomitant]
     Active Substance: DIGOXIN
     Indication: PRODUCT USED FOR UNKNOWN INDICATION
     Dosage: 0.13 MG, UNK (1-0-0)
     Route: 065
  6. LINEZOLID. [Suspect]
     Active Substance: LINEZOLID
     Indication: ENDOCARDITIS
     Dosage: 600 MG, UNK
     Route: 065
  7. MILURIT [Concomitant]
     Active Substance: ALLOPURINOL
     Indication: PRODUCT USED FOR UNKNOWN INDICATION
     Dosage: 150 MG, UNK (0-1-0)
     Route: 065

REACTIONS (1)
  - Aplastic anaemia [Recovered/Resolved]

NARRATIVE: CASE EVENT DATE: 20190214
